FAERS Safety Report 8460255-3 (Version None)
Quarter: 2012Q2

REPORT INFORMATION
  Report Type: 
  Country: None (occurrence: None)
  Receive Date: 20120323
  Receipt Date: 20110919
  Transmission Date: 20120825
  Serious: Yes (Other)
  Sender: FDA-Public Use
  Company Number: 163-21880-11092660

PATIENT
  Age: 62 Year
  Sex: Male

DRUGS (17)
  1. VALACYCLOVIR HCL (VALACICLOVIR) (TABLETS) [Concomitant]
  2. REVLIMID [Suspect]
     Indication: MULTIPLE MYELOMA
     Dosage: 10 MG, 1 IN 1 D, PO, 10 MG, 1 IN 1 D, PO
     Route: 048
     Dates: start: 20110906
  3. REVLIMID [Suspect]
     Indication: MULTIPLE MYELOMA
     Dosage: 10 MG, 1 IN 1 D, PO, 10 MG, 1 IN 1 D, PO
     Route: 048
     Dates: start: 20080103, end: 20110809
  4. AMBIEN [Concomitant]
  5. DEXLANSOPRAZOLE (DEXLANSOPRAZOLE) (CAPSULES) [Concomitant]
  6. DOXEPIN (DOXEPIN) (CAPSULES) [Concomitant]
  7. KAPIDEX (DEXLANSOPRAZOLE) (CAPSULES) [Concomitant]
  8. COUMADIN [Concomitant]
  9. VITAMIN B COMPLEX (B-KOMPLEX ^LECIVA^) (CAPSULES) [Concomitant]
  10. TYLENOL (PARACETAMOL) (CAPSULES) [Concomitant]
  11. XANAX [Concomitant]
  12. ACETYLCARNITINE (ACETYLCARNITINE) [Concomitant]
  13. DEXAMETHASONE [Concomitant]
  14. NEUPOGEN [Concomitant]
  15. NORVASC [Concomitant]
  16. ZOLOFT [Concomitant]
  17. HYDROCODONE-ACETAMINOPHEN (VICODIN) (TABLETS) [Concomitant]

REACTIONS (1)
  - DEHYDRATION [None]
